FAERS Safety Report 5103973-7 (Version None)
Quarter: 2006Q3

REPORT INFORMATION
  Report Type: 
  Country: None (occurrence: None)
  Receive Date: 20060911
  Receipt Date: 20060825
  Transmission Date: 20061208
  Serious: Yes (Other)
  Sender: FDA-Public Use
  Company Number: 230547K06CAN

PATIENT
  Sex: Female

DRUGS (4)
  1. REBIF [Suspect]
     Indication: MULTIPLE SCLEROSIS
     Dates: start: 20060130
  2. PENTASA [Concomitant]
  3. ANTIBIOTICS (ANTIBIOTICS) [Concomitant]
  4. METHYLPREDNISOLONE SODIUM SUCCINATE [Concomitant]

REACTIONS (1)
  - CROHN'S DISEASE [None]
